FAERS Safety Report 8221526-9 (Version None)
Quarter: 2012Q1

REPORT INFORMATION
  Report Type: 
  Country: None (occurrence: None)
  Receive Date: 20120320
  Receipt Date: 20120308
  Transmission Date: 20120608
  Serious: Yes (Other)
  Sender: FDA-Public Use
  Company Number: CR-PFIZER INC-2012069995

PATIENT
  Age: 64 Year
  Sex: Male

DRUGS (3)
  1. ATENOLOL [Concomitant]
  2. HYDROCHLOROTHIAZIDE [Concomitant]
  3. PANTOPRAZOLE [Suspect]
     Indication: GASTRIC ULCER
     Dosage: 40 MG, 2X/DAY
     Route: 048
     Dates: end: 20110201

REACTIONS (1)
  - BRAIN NEOPLASM [None]
